FAERS Safety Report 20129891 (Version 2)
Quarter: 2021Q4

REPORT INFORMATION
  Report Type: Spontaneous
  Country: SI (occurrence: SI)
  Receive Date: 20211130
  Receipt Date: 20211216
  Transmission Date: 20220303
  Serious: Yes (Other)
  Sender: FDA-Public Use
  Company Number: SI-BAYER-2021A257032

PATIENT

DRUGS (6)
  1. EYLEA [Suspect]
     Active Substance: AFLIBERCEPT
     Indication: Retinal vein occlusion
     Dosage: UNK, 2 DOSES RECEIVED
     Dates: start: 2016, end: 2016
  2. EYLEA [Suspect]
     Active Substance: AFLIBERCEPT
     Dosage: UNK, 6 DOSES RECEIVED
     Dates: start: 2017, end: 2017
  3. EYLEA [Suspect]
     Active Substance: AFLIBERCEPT
     Dosage: UNK, 5 DOSES RECEIVED
     Dates: start: 2018, end: 2018
  4. EYLEA [Suspect]
     Active Substance: AFLIBERCEPT
     Dosage: UNK, 5 DOSES RECEIVED
     Dates: start: 2019, end: 2019
  5. EYLEA [Suspect]
     Active Substance: AFLIBERCEPT
     Dosage: UNK, 3 DOSES RECEIVED
     Dates: start: 2020, end: 2020
  6. EYLEA [Suspect]
     Active Substance: AFLIBERCEPT
     Dosage: UNK, 3 DOSES RECEIVED
     Dates: start: 2021, end: 2021

REACTIONS (4)
  - Blindness unilateral [Recovered/Resolved]
  - Vitreous haemorrhage [Recovered/Resolved]
  - Retinal neovascularisation [Recovered/Resolved]
  - Retinal ischaemia [Recovered/Resolved]

NARRATIVE: CASE EVENT DATE: 20190101
